FAERS Safety Report 14430724 (Version 3)
Quarter: 2018Q1

REPORT INFORMATION
  Report Type: Report from Study
  Country: US (occurrence: US)
  Receive Date: 20180124
  Receipt Date: 20180309
  Transmission Date: 20180509
  Serious: Yes (Other)
  Sender: FDA-Public Use
  Company Number: US-ROCHE-2054297

PATIENT
  Age: 54 Year
  Sex: Female
  Weight: 64.92 kg

DRUGS (17)
  1. LEVAQUIN [Concomitant]
     Active Substance: LEVOFLOXACIN
  2. ROSUVASTATIN CALCIUM. [Concomitant]
     Active Substance: ROSUVASTATIN CALCIUM
     Route: 048
  3. TAMIFLU [Suspect]
     Active Substance: OSELTAMIVIR PHOSPHATE
     Indication: PRODUCT USED FOR UNKNOWN INDICATION
     Route: 065
     Dates: start: 201801
  4. ALPRAZOLAM. [Concomitant]
     Active Substance: ALPRAZOLAM
     Route: 048
  5. DEXILANT [Concomitant]
     Active Substance: DEXLANSOPRAZOLE
     Route: 048
  6. FLONASE [Concomitant]
     Active Substance: FLUTICASONE PROPIONATE
     Route: 045
  7. LANSOPRAZOLE. [Concomitant]
     Active Substance: LANSOPRAZOLE
     Route: 048
  8. NUTROPIN AQ [Suspect]
     Active Substance: SOMATROPIN
     Indication: BLOOD GROWTH HORMONE DECREASED
     Dosage: ONGOING, TAKE MEDICATION MONDAY- FRIDAY, NUSPIN PEN
     Route: 058
  9. PROAIR HFA [Concomitant]
     Active Substance: ALBUTEROL SULFATE
     Route: 065
  10. SINGULAIR [Concomitant]
     Active Substance: MONTELUKAST SODIUM
  11. LEVOFLOXACIN. [Concomitant]
     Active Substance: LEVOFLOXACIN
     Route: 048
  12. IBUPROFEN. [Concomitant]
     Active Substance: IBUPROFEN
  13. CONTRAVE [Concomitant]
     Active Substance: BUPROPION HYDROCHLORIDE\NALTREXONE HYDROCHLORIDE
     Route: 048
  14. TRAZODONE HYDROCHLORIDE. [Concomitant]
     Active Substance: TRAZODONE HYDROCHLORIDE
  15. NUTROPIN AQ [Suspect]
     Active Substance: SOMATROPIN
     Indication: GROWTH HORMONE DEFICIENCY
     Dosage: ONGOING: YES 20MG/2ML
     Route: 058
  16. HYDROCHLOROTHIAZIDE. [Concomitant]
     Active Substance: HYDROCHLOROTHIAZIDE
     Route: 048
  17. DESVENLAFAXINE SUCCINATE. [Concomitant]
     Active Substance: DESVENLAFAXINE SUCCINATE
     Route: 048

REACTIONS (25)
  - Joint swelling [Unknown]
  - Peripheral swelling [Recovered/Resolved]
  - Influenza [Not Recovered/Not Resolved]
  - Metabolic syndrome [Unknown]
  - Carpal tunnel syndrome [Unknown]
  - Visual impairment [Unknown]
  - Blood glucose increased [Unknown]
  - Swelling face [Recovered/Resolved]
  - Hyperlipidaemia [Unknown]
  - Vitamin B complex deficiency [Unknown]
  - Musculoskeletal stiffness [Unknown]
  - Dysphonia [Unknown]
  - Gastrooesophageal reflux disease [Unknown]
  - Arthralgia [Not Recovered/Not Resolved]
  - Obsessive-compulsive disorder [Unknown]
  - Epicondylitis [Unknown]
  - Vitamin C deficiency [Unknown]
  - Arthralgia [Unknown]
  - Hypothyroidism [Unknown]
  - Blood cholesterol increased [Unknown]
  - Abnormal weight gain [Unknown]
  - Acute sinusitis [Unknown]
  - Hyperglycaemia [Unknown]
  - Blood urea nitrogen/creatinine ratio increased [Unknown]
  - Carpal tunnel syndrome [Not Recovered/Not Resolved]

NARRATIVE: CASE EVENT DATE: 20180106
